FAERS Safety Report 10264291 (Version 2)
Quarter: 2014Q2

REPORT INFORMATION
  Report Type: Spontaneous
  Country: US (occurrence: US)
  Receive Date: 20140627
  Receipt Date: 20140627
  Transmission Date: 20141212
  Serious: No
  Sender: FDA-Public Use
  Company Number: US-TEVA-482357USA

PATIENT
  Sex: Male

DRUGS (2)
  1. PRAVASTATIN [Suspect]
  2. PROPRANOLOL [Suspect]

REACTIONS (2)
  - Fatigue [Unknown]
  - Product commingling [Unknown]
